FAERS Safety Report 5118193-X (Version None)
Quarter: 2006Q3

REPORT INFORMATION
  Report Type: 
  Country: None (occurrence: None)
  Receive Date: 20060926
  Receipt Date: 20060911
  Transmission Date: 20061208
  Serious: Yes (Death)
  Sender: FDA-Public Use
  Company Number: BE200609003045

PATIENT
  Age: 79 Year
  Sex: Male

DRUGS (1)
  1. DULOXETINE HYDROCHLORIDE(DULOXETINE HYDROCHLORIDE) CAPSULE [Suspect]
     Indication: DEPRESSION
     Dosage: 60 MG, DAILY (1/D), ORAL; 30 MG, ORAL
     Route: 048
     Dates: start: 20060601

REACTIONS (1)
  - SUDDEN DEATH [None]
